FAERS Safety Report 5440904-4 (Version None)
Quarter: 2007Q3

REPORT INFORMATION
  Report Type: 
  Country: None (occurrence: None)
  Receive Date: 20070831
  Receipt Date: 20070820
  Transmission Date: 20080115
  Serious: Yes (Other)
  Sender: FDA-Public Use
  Company Number: US-PFIZER INC-2007030644

PATIENT
  Sex: Female

DRUGS (1)
  1. CELEBREX [Suspect]
     Indication: BACK INJURY
     Route: 048
     Dates: start: 20020126, end: 20021126

REACTIONS (4)
  - ARRHYTHMIA [None]
  - MYOCARDIAL INFARCTION [None]
  - ORGAN FAILURE [None]
  - STEVENS-JOHNSON SYNDROME [None]
